FAERS Safety Report 5268333-7 (Version None)
Quarter: 2007Q1

REPORT INFORMATION
  Report Type: 
  Country: None (occurrence: None)
  Receive Date: 20070315
  Receipt Date: 20070315
  Transmission Date: 20070707
  Serious: No
  Sender: FDA-Public Use
  Company Number: None

PATIENT
  Sex: Male
  Weight: 90.7194 kg

DRUGS (2)
  1. SERTRALINE [Suspect]
     Indication: DEPRESSION
     Dosage: 100MG TABLET
     Dates: start: 20070111
  2. NEFAZADONE 150MG TABLET TEVA [Suspect]
     Indication: DEPRESSION
     Dosage: 150MG TABLET
     Dates: start: 20070312

REACTIONS (3)
  - CIRCUMSTANCE OR INFORMATION CAPABLE OF LEADING TO MEDICATION ERROR [None]
  - IRRITABILITY [None]
  - MEDICATION ERROR [None]
